FAERS Safety Report 9161418 (Version 1)
Quarter: 2013Q1

REPORT INFORMATION
  Report Type: Spontaneous
  Country: US (occurrence: US)
  Receive Date: 20130313
  Receipt Date: 20130313
  Transmission Date: 20140127
  Serious: No
  Sender: FDA-Public Use
  Company Number: US-009507513-1303USA005209

PATIENT
  Sex: 0

DRUGS (1)
  1. NEXPLANON [Suspect]

REACTIONS (1)
  - Adverse event [Unknown]
